FAERS Safety Report 6111287-1 (Version None)
Quarter: 2009Q1

REPORT INFORMATION
  Report Type: 
  Country: None (occurrence: None)
  Receive Date: 20090309
  Receipt Date: 20090224
  Transmission Date: 20090719
  Serious: Yes (Death)
  Sender: FDA-Public Use
  Company Number: POMP-1000434

PATIENT
  Age: 10 Month
  Sex: Female
  Weight: 8 kg

DRUGS (4)
  1. MYOZYME [Suspect]
     Indication: GLYCOGEN STORAGE DISEASE TYPE II
     Dosage: 150 MG, Q2W, INTRAVENOUS
     Route: 042
     Dates: start: 20080530, end: 20081130
  2. IPRATROPIUM BROMIDE [Concomitant]
  3. BUDESONIDE [Concomitant]
  4. FUROSEMIDE (FUROSEMIDE SODIUM) [Concomitant]

REACTIONS (1)
  - ASPIRATION [None]
